FAERS Safety Report 7557595-9 (Version None)
Quarter: 2011Q2

REPORT INFORMATION
  Report Type: 
  Country: None (occurrence: None)
  Receive Date: 20110610
  Receipt Date: 20110527
  Transmission Date: 20111010
  Serious: Yes (Hospitalization)
  Sender: FDA-Public Use
  Company Number: ALK_01728_2011

PATIENT
  Sex: Female

DRUGS (1)
  1. VIVITROL [Suspect]
     Indication: PRODUCT USED FOR UNKNOWN INDICATION
     Dosage: INTRAMUSCULAR
     Route: 030

REACTIONS (1)
  - GALLBLADDER OPERATION [None]
